FAERS Safety Report 5304715-2 (Version None)
Quarter: 2007Q2

REPORT INFORMATION
  Report Type: 
  Country: None (occurrence: None)
  Receive Date: 20070423
  Receipt Date: 20070405
  Transmission Date: 20071010
  Serious: Yes (Hospitalization)
  Sender: FDA-Public Use
  Company Number: DE-PURDUE-DEU_2007_0003178

PATIENT
  Age: 64 Year
  Sex: Male

DRUGS (3)
  1. MSI MUNDIPHARMA [Suspect]
     Indication: CANCER PAIN
     Dosage: 1.5 ML/HR, Q1H
     Route: 042
     Dates: start: 20070324
  2. METHOTREXAT [Concomitant]
  3. HYDROMORPHONE HCL [Concomitant]

REACTIONS (6)
  - COORDINATION ABNORMAL [None]
  - EYE ROLLING [None]
  - HALLUCINATION [None]
  - ILLUSION [None]
  - MUSCLE TWITCHING [None]
  - UNRESPONSIVE TO STIMULI [None]
